FAERS Safety Report 5067992-1 (Version None)
Quarter: 2006Q3

REPORT INFORMATION
  Report Type: 
  Country: None (occurrence: None)
  Receive Date: 20060717
  Receipt Date: 20051212
  Transmission Date: 20061208
  Serious: Yes (Other)
  Sender: FDA-Public Use
  Company Number: 2005-12-0831

PATIENT

DRUGS (1)
  1. INTEGRILIN [Suspect]
     Dosage: INTRAVENOUS
     Route: 042

REACTIONS (1)
  - RETROPERITONEAL HAEMORRHAGE [None]
